FAERS Safety Report 13790377 (Version 1)
Quarter: 2017Q3

REPORT INFORMATION
  Report Type: Spontaneous
  Country: DE (occurrence: DE)
  Receive Date: 20170725
  Receipt Date: 20170725
  Transmission Date: 20171127
  Serious: Yes (Other)
  Sender: FDA-Public Use
  Company Number: DE-SUN PHARMACEUTICAL INDUSTRIES LTD-2017RR-145914

PATIENT
  Age: 67 Year
  Sex: Male

DRUGS (3)
  1. BACLOFEN. [Suspect]
     Active Substance: BACLOFEN
     Indication: MUSCLE SPASTICITY
     Dosage: 10MG, TID, LONG-TERM INTAKE
     Route: 048
  2. AQUAPHOR [Concomitant]
     Active Substance: PETROLATUM
     Indication: OEDEMA
     Dosage: 20 MG, LONG-TERM INTAKE
     Route: 048
  3. PANTOZOL [Concomitant]
     Active Substance: PANTOPRAZOLE SODIUM
     Indication: GASTROOESOPHAGEAL REFLUX DISEASE
     Dosage: 40 MG, LONG-TERM INTAKE
     Route: 048

REACTIONS (6)
  - Tachycardia [Recovered/Resolved]
  - Disorientation [Recovered/Resolved]
  - Overdose [Recovered/Resolved]
  - Coordination abnormal [Recovered/Resolved]
  - Disturbance in attention [Recovered/Resolved]
  - Hypotension [Recovered/Resolved]

NARRATIVE: CASE EVENT DATE: 20170419
